FAERS Safety Report 7431082-0 (Version None)
Quarter: 2011Q2

REPORT INFORMATION
  Report Type: 
  Country: None (occurrence: None)
  Receive Date: 20110421
  Receipt Date: 20110411
  Transmission Date: 20111010
  Serious: Yes (Other)
  Sender: FDA-Public Use
  Company Number: DE-ELI_LILLY_AND_COMPANY-DE201103000111

PATIENT
  Sex: Female

DRUGS (10)
  1. ASPIRIN [Concomitant]
     Dosage: 100 MG, UNK
     Dates: end: 20110201
  2. OMEPRAZOLE [Concomitant]
     Dosage: 20 MG, UNK
  3. VOLTAREN [Concomitant]
  4. MESALAMINE [Concomitant]
  5. FORTEO [Suspect]
     Indication: OSTEOPOROSIS
     Route: 058
  6. NOVAMINSULFON [Concomitant]
     Dosage: 80 D/F, UNK
  7. FERROUS SULFATE TAB [Concomitant]
  8. RAMIPRIL [Concomitant]
     Dosage: 10 MG, UNK
  9. ARAVA [Concomitant]
     Dosage: 10 MG, UNK
  10. ENBREL [Concomitant]
     Dosage: 40 MG, UNK

REACTIONS (6)
  - NECROTISING COLITIS [None]
  - MUSCLE SPASMS [None]
  - CHOLELITHIASIS [None]
  - RENAL CYST [None]
  - IRON DEFICIENCY ANAEMIA [None]
  - HEPATIC STEATOSIS [None]
